FAERS Safety Report 7296296-1 (Version None)
Quarter: 2011Q1

REPORT INFORMATION
  Report Type: 
  Country: None (occurrence: None)
  Receive Date: 20110211
  Receipt Date: 20110211
  Transmission Date: 20110831
  Serious: Yes (Hospitalization)
  Sender: FDA-Public Use
  Company Number: None

PATIENT
  Age: 41 Year
  Sex: Male
  Weight: 99 kg

DRUGS (11)
  1. VINCRISTINE 1.4MG/M2=2MG BEDFORD [Suspect]
     Indication: B-CELL LYMPHOMA
     Dosage: VINCRISTINE EVERY 2 WEEKS IVPB
     Route: 042
     Dates: start: 20110201
  2. PREDNISONE 100MG DAILY=500MG ROXANE [Suspect]
     Dosage: PREDNISONE EVERY 2 WEEKS IVPB ORALLY
     Route: 048
     Dates: start: 20110201
  3. LEUKINE [Suspect]
  4. ALLOPURINOL [Concomitant]
  5. KYTRIL [Concomitant]
  6. VICODIN [Concomitant]
  7. ADRIAMYCIN [Suspect]
     Indication: B-CELL LYMPHOMA
     Dosage: ADRIAMYCIN EVERY 2 WEEKS IVP
     Route: 042
     Dates: start: 20110201
  8. CYTOXAN 750MG/M2=1650MG BAXTER [Suspect]
     Dosage: CYTOXAN EVERY 2 WEEKS IVPB ORALLY
     Route: 048
     Dates: start: 20110201
  9. VICODIN [Concomitant]
  10. KYTRIL [Concomitant]
  11. RITUXAN [Suspect]

REACTIONS (5)
  - CHILLS [None]
  - POLLAKIURIA [None]
  - NEUTROPHIL COUNT DECREASED [None]
  - HEADACHE [None]
  - PYREXIA [None]
